FAERS Safety Report 25278240 (Version 1)
Quarter: 2025Q2

REPORT INFORMATION
  Report Type: Spontaneous
  Country: US (occurrence: US)
  Receive Date: 20250507
  Receipt Date: 20250507
  Transmission Date: 20250717
  Serious: Yes (Other)
  Sender: COLLEGIUM PHARMACEUTICAL
  Company Number: US-COLLEGIUM PHARMACEUTICAL, INC.-20250402050

PATIENT

DRUGS (1)
  1. JORNAY PM EXTENDED-RELEASE [Suspect]
     Active Substance: METHYLPHENIDATE HYDROCHLORIDE
     Indication: Attention deficit hyperactivity disorder
     Route: 065

REACTIONS (2)
  - Colitis [Recovered/Resolved]
  - Abdominal pain upper [Recovered/Resolved]
